FAERS Safety Report 24690554 (Version 1)
Quarter: 2024Q4

REPORT INFORMATION
  Report Type: Spontaneous
  Country: US (occurrence: None)
  Receive Date: 20241203
  Receipt Date: 20241203
  Transmission Date: 20250114
  Serious: Yes (Hospitalization)
  Sender: Public
  Company Number: None

PATIENT
  Sex: Male

DRUGS (1)
  1. KESIMPTA [Suspect]
     Active Substance: OFATUMUMAB
     Indication: Multiple sclerosis
     Dosage: FREQ: INJECT 20 MG UNDER THE SKIN EVERY 28 (TWENTY EIGHT) DAYS.?
     Route: 058
     Dates: start: 20221018

REACTIONS (2)
  - White blood cell count increased [None]
  - Multiple sclerosis relapse [None]
